FAERS Safety Report 10910156 (Version 1)
Quarter: 2015Q1

REPORT INFORMATION
  Report Type: Spontaneous
  Country: US (occurrence: US)
  Receive Date: 20150312
  Receipt Date: 20150312
  Transmission Date: 20150721
  Serious: No
  Sender: FDA-Public Use
  Company Number: US-SA-2014SA095335

PATIENT
  Sex: Male

DRUGS (1)
  1. NASACORT ALLERGY 24HR [Suspect]
     Active Substance: TRIAMCINOLONE ACETONIDE
     Indication: RHINITIS
     Dosage: DOSE: 1-2 SPRAYS/NARE
     Route: 045
     Dates: start: 20140706, end: 20140713

REACTIONS (3)
  - Feeling abnormal [Unknown]
  - Feeling jittery [Unknown]
  - Insomnia [Unknown]
